FAERS Safety Report 17148655 (Version 1)
Quarter: 2019Q4

REPORT INFORMATION
  Report Type: Spontaneous
  Country: DE (occurrence: DE)
  Receive Date: 20191213
  Receipt Date: 20191213
  Transmission Date: 20200122
  Serious: Yes (Other)
  Sender: FDA-Public Use
  Company Number: DE-US-PROVELL PHARMACEUTICALS LLC-E2B_90073011

PATIENT
  Age: 29 Year
  Sex: Female

DRUGS (4)
  1. IRON [Concomitant]
     Active Substance: IRON
     Indication: IRON DEFICIENCY
  2. EUTHYROX [Suspect]
     Active Substance: LEVOTHYROXINE SODIUM
     Indication: AUTOIMMUNE THYROIDITIS
     Dosage: ALTERNATELY 100 AND 112 (UNSPECIFIED UNIT)
  3. EUTHYROX [Suspect]
     Active Substance: LEVOTHYROXINE SODIUM
     Dosage: FORM STRENGTH: 112 (UNSPECIFIED UNIT)
  4. EUTHYROX [Suspect]
     Active Substance: LEVOTHYROXINE SODIUM
     Indication: AUTOIMMUNE THYROIDITIS
     Dosage: ALTERNATELY 100 AND 112 (UNSPECIFIED UNIT)

REACTIONS (7)
  - Hyperthyroidism [Unknown]
  - Dry eye [Unknown]
  - Vitamin B12 increased [Unknown]
  - Hypothyroidism [Unknown]
  - Biotin deficiency [Unknown]
  - Vitamin B2 deficiency [Unknown]
  - Eye inflammation [Unknown]

NARRATIVE: CASE EVENT DATE: 201806
